FAERS Safety Report 9631431 (Version 1)
Quarter: 2013Q4

REPORT INFORMATION
  Report Type: Spontaneous
  Country: CH (occurrence: None)
  Receive Date: 20131016
  Receipt Date: 20131016
  Transmission Date: 20140711
  Serious: Yes (Hospitalization, Other)
  Sender: FDA-Public Use
  Company Number: 20130534

PATIENT
  Age: 50 Year
  Sex: Female
  Weight: 70 kg

DRUGS (7)
  1. FERINJECT [Suspect]
     Dates: start: 20130909, end: 20130909
  2. OXYCONTIN (OXYCODONE HYDROCHLORIDE) [Concomitant]
  3. VENOFER (IRON SUCROSE, IRON III HYDROXIDE- SUCORSE COMPLEX) [Concomitant]
  4. CLARITHROMYCIN [Concomitant]
  5. HYDROXYCHLOROQUINE [Concomitant]
  6. METRONIDAZOLE [Concomitant]
  7. FERROUS FUMARATE [Concomitant]

REACTIONS (6)
  - Groin pain [None]
  - Graft complication [None]
  - Abdominal pain [None]
  - Pyrexia [None]
  - Chills [None]
  - Tachycardia [None]
